FAERS Safety Report 23490746 (Version 1)
Quarter: 2024Q1

REPORT INFORMATION
  Report Type: Spontaneous
  Country: US (occurrence: None)
  Receive Date: 20240206
  Receipt Date: 20240206
  Transmission Date: 20240410
  Serious: No
  Sender: FDA-Public Use
  Company Number: US-ROCHE-3351053

PATIENT
  Age: 13 Year
  Sex: Male
  Weight: 40.86 kg

DRUGS (4)
  1. NUTROPIN AQ [Suspect]
     Active Substance: SOMATROPIN
     Indication: Hypopituitarism
     Dosage: 20 MG/2 ML
     Route: 058
     Dates: start: 202304
  2. NUTROPIN AQ [Suspect]
     Active Substance: SOMATROPIN
  3. NUTROPIN AQ [Suspect]
     Active Substance: SOMATROPIN
     Indication: Growth hormone deficiency
  4. NUTROPIN AQ [Suspect]
     Active Substance: SOMATROPIN

REACTIONS (4)
  - Product dose omission issue [Unknown]
  - Product complaint [Unknown]
  - Exposure via skin contact [Unknown]
  - No adverse event [Unknown]

NARRATIVE: CASE EVENT DATE: 20230511
